FAERS Safety Report 21373050 (Version 1)
Quarter: 2022Q3

REPORT INFORMATION
  Report Type: Report from Study
  Country: US (occurrence: US)
  Receive Date: 20220924
  Receipt Date: 20220924
  Transmission Date: 20221027
  Serious: Yes (Other)
  Sender: FDA-Public Use
  Company Number: US-ABBVIE-4129367

PATIENT

DRUGS (5)
  1. HUMIRA [Suspect]
     Active Substance: ADALIMUMAB
     Indication: Uveitis
     Dosage: CITRATE FREE
     Route: 058
  2. Pfizer/BioNtech Covid 19 vaccine [Concomitant]
     Indication: COVID-19 immunisation
     Dosage: 2ND DOSE?ONCE
     Route: 030
     Dates: start: 20210306, end: 20210306
  3. Pfizer/BioNtech Covid 19 vaccine [Concomitant]
     Indication: COVID-19 immunisation
     Dosage: 4TH DOSE?ONCE
     Route: 030
     Dates: start: 20220521, end: 20220521
  4. Pfizer/BioNtech Covid 19 vaccine [Concomitant]
     Indication: COVID-19 immunisation
     Dosage: 1ST DOSE?ONCE
     Route: 030
     Dates: start: 20210213, end: 20210213
  5. Pfizer/BioNtech Covid 19 vaccine [Concomitant]
     Indication: COVID-19 immunisation
     Dosage: 3RD DOSE?ONCE
     Route: 030
     Dates: start: 20211012, end: 20211012

REACTIONS (2)
  - Thyroidectomy [Unknown]
  - Dysphonia [Unknown]
